FAERS Safety Report 18320674 (Version 1)
Quarter: 2020Q3

REPORT INFORMATION
  Report Type: Spontaneous
  Country: DK (occurrence: DK)
  Receive Date: 20200928
  Receipt Date: 20200928
  Transmission Date: 20201103
  Serious: Yes (Hospitalization)
  Sender: FDA-Public Use
  Company Number: DK-PFIZER INC-2020373420

PATIENT
  Age: 71 Year
  Sex: Male

DRUGS (3)
  1. ZESSLY [Suspect]
     Active Substance: INFLIXIMAB
     Dosage: 500 MG
     Route: 042
     Dates: start: 20190425, end: 20200128
  2. METHOTREXATE SODIUM. [Suspect]
     Active Substance: METHOTREXATE SODIUM
     Indication: PSORIATIC ARTHROPATHY
     Dosage: 7.5 MG, QW
     Route: 048
     Dates: start: 20180104, end: 20200128
  3. FOLIMET [Concomitant]
     Active Substance: FOLIC ACID
     Dosage: UNK
     Dates: start: 20161003

REACTIONS (3)
  - Nervous system disorder [Unknown]
  - Autoimmune disorder [Unknown]
  - Optic neuritis [Unknown]

NARRATIVE: CASE EVENT DATE: 20200121
